FAERS Safety Report 16058612 (Version 1)
Quarter: 2019Q1

REPORT INFORMATION
  Report Type: Spontaneous
  Country: NL (occurrence: NL)
  Receive Date: 20190311
  Receipt Date: 20190311
  Transmission Date: 20190418
  Serious: Yes (Hospitalization)
  Sender: FDA-Public Use
  Company Number: NL-TEVA-2019-NL-1021614

PATIENT
  Age: 79 Year
  Sex: Male
  Weight: 90 kg

DRUGS (8)
  1. ASCAL 100MG [Concomitant]
     Dates: start: 201409
  2. HYDROCHLOORTHIAZID 12,5MG [Concomitant]
     Dates: start: 2017
  3. CIPROFLOXACINE TABLET, 500 MG (MILLIGRAM) [Suspect]
     Active Substance: CIPROFLOXACIN
     Indication: PROSTATE INFECTION
     Dosage: 2 TIMES A DAY 1 TABLET, FOR 14 DAYS
     Dates: start: 20190108, end: 20190121
  4. BISOPROLOL 1,25MG [Concomitant]
     Dates: start: 201409
  5. CLOPIDOGREL [Concomitant]
     Active Substance: CLOPIDOGREL BISULFATE
     Dates: start: 20180424
  6. METFORMINE 500MG [Concomitant]
     Dates: start: 201409
  7. PERINDOPRIL 8MG [Concomitant]
     Active Substance: PERINDOPRIL
     Dates: start: 201409
  8. PANTOPRAZOL [Concomitant]
     Active Substance: PANTOPRAZOLE SODIUM
     Dates: start: 201409

REACTIONS (1)
  - Pancreatitis acute [Recovered/Resolved]

NARRATIVE: CASE EVENT DATE: 20190127
